FAERS Safety Report 6731423-3 (Version None)
Quarter: 2010Q2

REPORT INFORMATION
  Report Type: 
  Country: None (occurrence: None)
  Receive Date: 20100518
  Receipt Date: 20100518
  Transmission Date: 20101027
  Serious: No
  Sender: FDA-Public Use
  Company Number: None

PATIENT
  Sex: Male
  Weight: 25.855 kg

DRUGS (1)
  1. IMIQUIMOD [Suspect]
     Indication: SKIN PAPILLOMA
     Dosage: APPLY TO WART SPARINGLY W/COVER DAILY TOP
     Route: 061
     Dates: start: 20100504, end: 20100517

REACTIONS (4)
  - HEADACHE [None]
  - NAUSEA [None]
  - PYREXIA [None]
  - VOMITING [None]
